FAERS Safety Report 6703958-0 (Version None)
Quarter: 2010Q2

REPORT INFORMATION
  Report Type: 
  Country: None (occurrence: None)
  Receive Date: 20100430
  Receipt Date: 20100422
  Transmission Date: 20101027
  Serious: Yes (Hospitalization)
  Sender: FDA-Public Use
  Company Number: JP-PFIZER INC-2010007941

PATIENT
  Age: 50 Year
  Sex: Male

DRUGS (7)
  1. CELECOX [Suspect]
     Dosage: UNK
     Route: 048
     Dates: start: 20080502
  2. THYRADIN S [Concomitant]
     Route: 048
  3. TAKEPRON [Concomitant]
     Route: 048
  4. GASMOTIN [Concomitant]
     Route: 048
  5. LAC B [Concomitant]
     Route: 048
  6. DAI-KENCHU-TO [Concomitant]
     Route: 048
  7. FULCALIQ [Concomitant]

REACTIONS (1)
  - MYELODYSPLASTIC SYNDROME [None]
